FAERS Safety Report 7099764-0 (Version None)
Quarter: 2010Q4

REPORT INFORMATION
  Report Type: 
  Country: None (occurrence: None)
  Receive Date: 20101112
  Receipt Date: 20101101
  Transmission Date: 20110411
  Serious: Yes (Hospitalization)
  Sender: FDA-Public Use
  Company Number: US-CELGENEUS-163-21880-10110169

PATIENT
  Sex: Female
  Weight: 66.284 kg

DRUGS (12)
  1. REVLIMID [Suspect]
     Route: 048
     Dates: start: 20100921, end: 20101029
  2. RITUXIMAB [Suspect]
     Route: 065
     Dates: start: 20101019, end: 20101026
  3. IMMUNE GLOBULIN INTRAVENOUS (HUMAN) [Concomitant]
     Route: 065
  4. LISINOPRIL [Concomitant]
     Route: 065
  5. BUMEX [Concomitant]
     Route: 065
  6. SYNTHROID [Concomitant]
     Route: 065
  7. AMBIEN [Concomitant]
     Route: 065
  8. ALLOPURINOL [Concomitant]
     Route: 065
  9. ASPIRIN [Concomitant]
     Route: 065
  10. PHOSPHORUS [Concomitant]
     Route: 051
     Dates: start: 20101029
  11. MEDROL [Concomitant]
     Dosage: DOSE-PAK
     Route: 051
     Dates: start: 20101029
  12. LEVAQUIN [Concomitant]
     Route: 065
     Dates: start: 20101028

REACTIONS (6)
  - ASTHENIA [None]
  - DIARRHOEA [None]
  - HYPOPHOSPHATAEMIA [None]
  - HYPOTENSION [None]
  - RHEUMATOID ARTHRITIS [None]
  - TUMOUR FLARE [None]
